FAERS Safety Report 7803424-5 (Version None)
Quarter: 2011Q4

REPORT INFORMATION
  Report Type: 
  Country: None (occurrence: None)
  Receive Date: 20111007
  Receipt Date: 20110204
  Transmission Date: 20120403
  Serious: No
  Sender: FDA-Public Use
  Company Number: US-BAYER-2011-012206

PATIENT
  Sex: Male

DRUGS (4)
  1. VIBRAMYCIN [Concomitant]
     Dosage: UNK
     Dates: start: 20110131
  2. ROCEPHIN [Concomitant]
     Dosage: UNK
     Dates: start: 20110131
  3. FLUCONAZOLE [Concomitant]
     Dosage: 150 MG, QD
     Dates: start: 20110101
  4. CIPRO [Suspect]
     Indication: URINARY TRACT INFECTION
     Dosage: 500 MG, BID
     Route: 048
     Dates: start: 20010201

REACTIONS (3)
  - DYSURIA [None]
  - PAIN [None]
  - GENITAL BURNING SENSATION [None]
